FAERS Safety Report 14690142 (Version 2)
Quarter: 2018Q2

REPORT INFORMATION
  Report Type: Spontaneous
  Country: GB (occurrence: GB)
  Receive Date: 20180328
  Receipt Date: 20180507
  Transmission Date: 20180711
  Serious: Yes (Other)
  Sender: FDA-Public Use
  Company Number: GB-MYLANLABS-2018M1017945

PATIENT
  Age: 59 Year
  Sex: Male

DRUGS (9)
  1. BORTEZOMIB [Suspect]
     Active Substance: BORTEZOMIB
     Indication: CARDIAC AMYLOIDOSIS
     Dosage: UNK, 21 DAY CYCLES
     Route: 065
     Dates: start: 20130701
  2. DEXAMETHASONE. [Suspect]
     Active Substance: DEXAMETHASONE
     Dosage: 21 DAY CYCLES LASTED ONLY 3 CYCLES
  3. DEXAMETHASONE. [Suspect]
     Active Substance: DEXAMETHASONE
     Dosage: 10 MG, QW
  4. LENALIDOMIDE-CELGENE EUROPE [Concomitant]
     Active Substance: LENALIDOMIDE
     Indication: CARDIAC AMYLOIDOSIS
     Dosage: 25 MG, QD FOR 21 DAYS OF 28 DAY CYCLE
     Dates: start: 201409
  5. CYCLOPHOSPHAMIDE. [Suspect]
     Active Substance: CYCLOPHOSPHAMIDE
     Indication: CARDIAC AMYLOIDOSIS
     Dosage: 21-DAY CYCLES (LASTED ONLY 3 CYCLES)
     Dates: start: 20130701
  6. DEXAMETHASONE. [Suspect]
     Active Substance: DEXAMETHASONE
     Indication: CARDIAC AMYLOIDOSIS
     Dosage: UNK UNK, 21 DAY CYCLES
     Route: 065
     Dates: start: 20130701
  7. BORTEZOMIB [Suspect]
     Active Substance: BORTEZOMIB
     Dosage: 21 DAY CYCLES LASTED ONLY 3 CYCLESUNK
  8. DEXAMETHASONE. [Suspect]
     Active Substance: DEXAMETHASONE
     Dosage: 4 MG WEEKLY AFTER SIX CYCLES
  9. ENOXAPARIN [Concomitant]
     Active Substance: ENOXAPARIN
     Indication: THROMBOSIS PROPHYLAXIS
     Dosage: 8 MG, QD

REACTIONS (3)
  - Autonomic neuropathy [Recovered/Resolved]
  - Orthostatic hypotension [Recovered/Resolved]
  - Cushingoid [Unknown]

NARRATIVE: CASE EVENT DATE: 20130101
